FAERS Safety Report 25485516 (Version 1)
Quarter: 2025Q2

REPORT INFORMATION
  Report Type: Report from Study
  Country: US (occurrence: US)
  Receive Date: 20250626
  Receipt Date: 20250626
  Transmission Date: 20250716
  Serious: Yes (Hospitalization)
  Sender: EISAI
  Company Number: US-Eisai-EC-2025-192148

PATIENT
  Age: 54 Year
  Sex: Female

DRUGS (5)
  1. LENVIMA [Suspect]
     Active Substance: LENVATINIB
     Indication: Renal cancer
  2. LENVIMA [Suspect]
     Active Substance: LENVATINIB
     Dates: start: 202410
  3. LENVIMA [Suspect]
     Active Substance: LENVATINIB
     Dates: end: 2025
  4. LENVIMA [Suspect]
     Active Substance: LENVATINIB
     Dates: start: 2025
  5. KEYTRUDA [Suspect]
     Active Substance: PEMBROLIZUMAB
     Indication: Renal cancer

REACTIONS (3)
  - Suicide attempt [Not Recovered/Not Resolved]
  - Confusional state [Unknown]
  - Suicidal ideation [Not Recovered/Not Resolved]

NARRATIVE: CASE EVENT DATE: 20250101
